FAERS Safety Report 22189328 (Version 2)
Quarter: 2023Q2

REPORT INFORMATION
  Report Type: Spontaneous
  Country: IT (occurrence: IT)
  Receive Date: 20230410
  Receipt Date: 20230509
  Transmission Date: 20230721
  Serious: Yes (Other)
  Sender: FDA-Public Use
  Company Number: IT-CELLTRION INC.-2023IT007034

PATIENT

DRUGS (4)
  1. RITUXIMAB [Suspect]
     Active Substance: RITUXIMAB
     Indication: Follicular lymphoma
     Dosage: 375 MG/M2 RITUXIMAB (DAY 1), MONTHLY
  2. RITUXIMAB [Suspect]
     Active Substance: RITUXIMAB
     Indication: Follicular lymphoma
     Dosage: 375 MILLIGRAM/SQ. METER, CYCLE; AS A PART OF R-BM REGIMEN ON DAY 1
  3. MITOXANTRONE [Suspect]
     Active Substance: MITOXANTRONE HYDROCHLORIDE
     Indication: Follicular lymphoma
     Dosage: 8 MILLIGRAM/SQ. METER, CYCLE; AS A PART OF R-BM REGIMEN ON DAYS 1
  4. BENDAMUSTINE [Suspect]
     Active Substance: BENDAMUSTINE
     Indication: Follicular lymphoma
     Dosage: 90 MILLIGRAM/SQ. METER, CYCLE; AS A PART OF R-BM REGIMEN ON DAYS 1-2

REACTIONS (2)
  - Disease progression [Unknown]
  - Drug ineffective [Unknown]
